FAERS Safety Report 5553366-3 (Version None)
Quarter: 2007Q4

REPORT INFORMATION
  Report Type: 
  Country: None (occurrence: None)
  Receive Date: 20071128
  Receipt Date: 20070827
  Transmission Date: 20080405
  Serious: Yes (Other)
  Sender: FDA-Public Use
  Company Number: CIP06001367

PATIENT
  Sex: Female
  Weight: 72.6 kg

DRUGS (8)
  1. ACTONEL [Suspect]
     Indication: OSTEOPENIA
     Dosage: 35 MG ONCE WEEKLY, ORAL
     Route: 048
     Dates: start: 20010101, end: 20050101
  2. SYNTHROID [Concomitant]
  3. HYDROCHLOROTHIAZIDE [Concomitant]
  4. CELEBREX [Concomitant]
  5. EVISTA [Concomitant]
  6. DETROL LA [Concomitant]
  7. EXTRA STRENGTH TYLENOL [Concomitant]
  8. DARVOCET [Concomitant]

REACTIONS (11)
  - DENTAL CARIES [None]
  - GINGIVAL RECESSION [None]
  - GINGIVITIS [None]
  - JAW DISORDER [None]
  - OSTEONECROSIS [None]
  - RESORPTION BONE INCREASED [None]
  - TOOTH ABSCESS [None]
  - TOOTH DISORDER [None]
  - TOOTH FRACTURE [None]
  - TOOTH INFECTION [None]
  - TREATMENT FAILURE [None]
